FAERS Safety Report 12381633 (Version 1)
Quarter: 2016Q2

REPORT INFORMATION
  Report Type: Spontaneous
  Country: US (occurrence: US)
  Receive Date: 20160518
  Receipt Date: 20160518
  Transmission Date: 20160815
  Serious: No
  Sender: FDA-Public Use
  Company Number: US-GLAXOSMITHKLINE-US2016GSK064334

PATIENT
  Sex: Female

DRUGS (1)
  1. FLONASE [Suspect]
     Active Substance: FLUTICASONE PROPIONATE
     Indication: MULTIPLE ALLERGIES

REACTIONS (2)
  - Nasal septum perforation [Unknown]
  - Epistaxis [Unknown]
